FAERS Safety Report 24889979 (Version 2)
Quarter: 2025Q1

REPORT INFORMATION
  Report Type: Spontaneous
  Country: NZ (occurrence: NZ)
  Receive Date: 20250127
  Receipt Date: 20250228
  Transmission Date: 20250409
  Serious: Yes (Other)
  Sender: MYLAN
  Company Number: NZ-MYLANLABS-2025M1001277

PATIENT
  Age: 79 Year
  Sex: Female

DRUGS (36)
  1. CLOZARIL [Suspect]
     Active Substance: CLOZAPINE
     Indication: Schizophrenia
     Dates: start: 20241216, end: 20250113
  2. CLOZARIL [Suspect]
     Active Substance: CLOZAPINE
     Route: 048
     Dates: start: 20241216, end: 20250113
  3. CLOZARIL [Suspect]
     Active Substance: CLOZAPINE
     Route: 048
     Dates: start: 20241216, end: 20250113
  4. CLOZARIL [Suspect]
     Active Substance: CLOZAPINE
     Dates: start: 20241216, end: 20250113
  5. NOVORAPID [Concomitant]
     Active Substance: INSULIN ASPART
  6. NOVORAPID [Concomitant]
     Active Substance: INSULIN ASPART
     Route: 065
  7. NOVORAPID [Concomitant]
     Active Substance: INSULIN ASPART
     Route: 065
  8. NOVORAPID [Concomitant]
     Active Substance: INSULIN ASPART
  9. LANTUS [Concomitant]
     Active Substance: INSULIN GLARGINE
  10. LANTUS [Concomitant]
     Active Substance: INSULIN GLARGINE
     Route: 065
  11. LANTUS [Concomitant]
     Active Substance: INSULIN GLARGINE
     Route: 065
  12. LANTUS [Concomitant]
     Active Substance: INSULIN GLARGINE
  13. ROPINIROLE [Concomitant]
     Active Substance: ROPINIROLE
  14. ROPINIROLE [Concomitant]
     Active Substance: ROPINIROLE
     Route: 065
  15. ROPINIROLE [Concomitant]
     Active Substance: ROPINIROLE
     Route: 065
  16. ROPINIROLE [Concomitant]
     Active Substance: ROPINIROLE
  17. QUETIAPINE [Concomitant]
     Active Substance: QUETIAPINE
  18. QUETIAPINE [Concomitant]
     Active Substance: QUETIAPINE
     Route: 065
  19. QUETIAPINE [Concomitant]
     Active Substance: QUETIAPINE
     Route: 065
  20. QUETIAPINE [Concomitant]
     Active Substance: QUETIAPINE
  21. RASAGILINE [Concomitant]
     Active Substance: RASAGILINE
  22. RASAGILINE [Concomitant]
     Active Substance: RASAGILINE
     Route: 065
  23. RASAGILINE [Concomitant]
     Active Substance: RASAGILINE
     Route: 065
  24. RASAGILINE [Concomitant]
     Active Substance: RASAGILINE
  25. SINEMET [Concomitant]
     Active Substance: CARBIDOPA\LEVODOPA
  26. SINEMET [Concomitant]
     Active Substance: CARBIDOPA\LEVODOPA
     Route: 065
  27. SINEMET [Concomitant]
     Active Substance: CARBIDOPA\LEVODOPA
     Route: 065
  28. SINEMET [Concomitant]
     Active Substance: CARBIDOPA\LEVODOPA
  29. METOPROLOL [Concomitant]
     Active Substance: METOPROLOL
  30. METOPROLOL [Concomitant]
     Active Substance: METOPROLOL
     Route: 065
  31. METOPROLOL [Concomitant]
     Active Substance: METOPROLOL
     Route: 065
  32. METOPROLOL [Concomitant]
     Active Substance: METOPROLOL
  33. ATORVASTATIN [Concomitant]
     Active Substance: ATORVASTATIN
  34. ATORVASTATIN [Concomitant]
     Active Substance: ATORVASTATIN
     Route: 065
  35. ATORVASTATIN [Concomitant]
     Active Substance: ATORVASTATIN
     Route: 065
  36. ATORVASTATIN [Concomitant]
     Active Substance: ATORVASTATIN

REACTIONS (5)
  - Myocarditis [Unknown]
  - Haemoglobin decreased [Not Recovered/Not Resolved]
  - Lymphocyte count decreased [Not Recovered/Not Resolved]
  - Haematocrit decreased [Not Recovered/Not Resolved]
  - Neutrophil count increased [Unknown]

NARRATIVE: CASE EVENT DATE: 20250106
